FAERS Safety Report 4930681-5 (Version None)
Quarter: 2006Q1

REPORT INFORMATION
  Report Type: 
  Country: None (occurrence: None)
  Receive Date: 20060302
  Receipt Date: 20060221
  Transmission Date: 20060701
  Serious: Yes (Other)
  Sender: FDA-Public Use
  Company Number: DE-BRISTOL-MYERS SQUIBB COMPANY-13293675

PATIENT
  Age: 13 Year
  Sex: Male

DRUGS (1)
  1. BESPAR [Suspect]

REACTIONS (1)
  - RECTAL HAEMORRHAGE [None]
